FAERS Safety Report 4690878-9 (Version None)
Quarter: 2005Q2

REPORT INFORMATION
  Report Type: 
  Country: None (occurrence: None)
  Receive Date: 20050614
  Receipt Date: 20050608
  Transmission Date: 20051028
  Serious: Yes (Other)
  Sender: FDA-Public Use
  Company Number: 05-06-1021

PATIENT
  Sex: Male

DRUGS (2)
  1. TRAMADOL HCL [Suspect]
     Dosage: 100 MG ORAL
     Route: 048
  2. ALLOPURINOL [Concomitant]

REACTIONS (2)
  - HALLUCINATION, AUDITORY [None]
  - THINKING ABNORMAL [None]
